FAERS Safety Report 22289641 (Version 1)
Quarter: 2023Q2

REPORT INFORMATION
  Report Type: Spontaneous
  Country: US (occurrence: None)
  Receive Date: 20230504
  Receipt Date: 20230504
  Transmission Date: 20230722
  Serious: Yes (Disabling)
  Sender: FDA-Public Use
  Company Number: None

PATIENT
  Age: 53 Year
  Sex: Female
  Weight: 63 kg

DRUGS (2)
  1. LUMIFY [Suspect]
     Active Substance: BRIMONIDINE TARTRATE
     Indication: Ocular hyperaemia
     Route: 047
     Dates: start: 20230101, end: 20230428
  2. IBUPROFEN [Concomitant]
     Active Substance: IBUPROFEN

REACTIONS (7)
  - Ocular hyperaemia [None]
  - Eye irritation [None]
  - Lacrimation increased [None]
  - Eye pruritus [None]
  - Diplopia [None]
  - Vision blurred [None]
  - Night blindness [None]

NARRATIVE: CASE EVENT DATE: 20230428
